FAERS Safety Report 10089233 (Version 1)
Quarter: 2014Q2

REPORT INFORMATION
  Report Type: Spontaneous
  Country: US (occurrence: None)
  Receive Date: 20140418
  Receipt Date: 20140418
  Transmission Date: 20141212
  Serious: Yes (Disabling)
  Sender: FDA-Public Use
  Company Number: None

PATIENT
  Age: 57 Year
  Sex: Female
  Weight: 80.74 kg

DRUGS (1)
  1. HUMIRA 40 ABBIE [Suspect]
     Dosage: SHOTS

REACTIONS (1)
  - Pustular psoriasis [None]
